FAERS Safety Report 21921860 (Version 1)
Quarter: 2023Q1

REPORT INFORMATION
  Report Type: Spontaneous
  Country: US (occurrence: US)
  Receive Date: 20230127
  Receipt Date: 20230127
  Transmission Date: 20230418
  Serious: No
  Sender: FDA-Public Use
  Company Number: US-SEBELA IRELAND LIMITED-2022SEB00008

PATIENT
  Sex: Male
  Weight: 154.2 kg

DRUGS (5)
  1. ANALPRAM HC [Suspect]
     Active Substance: HYDROCORTISONE ACETATE\PRAMOXINE HYDROCHLORIDE
     Indication: Haemorrhoids
     Dosage: UNK UNK, 3X/DAY
     Route: 054
  2. ANALPRAM HC [Suspect]
     Active Substance: HYDROCORTISONE ACETATE\PRAMOXINE HYDROCHLORIDE
     Dosage: UNK UNK, 4X/DAY
     Route: 054
  3. ANALPRAM HC [Suspect]
     Active Substance: HYDROCORTISONE ACETATE\PRAMOXINE HYDROCHLORIDE
     Dosage: UNK UNK, 3X/DAY
     Route: 054
     Dates: start: 202202
  4. ANALPRAM HC [Suspect]
     Active Substance: HYDROCORTISONE ACETATE\PRAMOXINE HYDROCHLORIDE
     Dosage: UNK UNK, 4X/DAY
     Route: 054
     Dates: start: 202202
  5. UNSPECIFIED INGREDIENT [Concomitant]
     Active Substance: UNSPECIFIED INGREDIENT

REACTIONS (3)
  - Haemorrhoidal haemorrhage [Recovering/Resolving]
  - Therapeutic product effect incomplete [Recovering/Resolving]
  - Product substitution issue [Recovering/Resolving]

NARRATIVE: CASE EVENT DATE: 20220201
